FAERS Safety Report 14559084 (Version 2)
Quarter: 2018Q1

REPORT INFORMATION
  Report Type: Report from Study
  Country: US (occurrence: US)
  Receive Date: 20180221
  Receipt Date: 20180301
  Transmission Date: 20180509
  Serious: Yes (Hospitalization)
  Sender: FDA-Public Use
  Company Number: US-ACTELION-A-NJ2018-167980

PATIENT
  Age: 60 Year
  Sex: Male

DRUGS (4)
  1. CLOBETASOL [Concomitant]
     Active Substance: CLOBETASOL
     Dosage: 0.05% 240G X 30 DAYS
     Dates: start: 20171130
  2. TRIAMCINOLONE [Concomitant]
     Active Substance: TRIAMCINOLONE
     Dosage: 0.1% 454G X 30 DAYS
     Dates: start: 20171130
  3. VALCHLOR [Suspect]
     Active Substance: MECHLORETHAMINE
     Indication: MYCOSIS FUNGOIDES
     Dosage: 3/WEEK
     Route: 061
     Dates: start: 20180123, end: 20180123
  4. VALCHLOR [Suspect]
     Active Substance: MECHLORETHAMINE
     Dosage: UNK
     Route: 061
     Dates: start: 201801

REACTIONS (3)
  - Dysphagia [Unknown]
  - Hypopharyngeal neoplasm benign [Recovered/Resolved]
  - Abscess drainage [Unknown]
